FAERS Safety Report 7988845-2 (Version None)
Quarter: 2011Q4

REPORT INFORMATION
  Report Type: 
  Country: None (occurrence: None)
  Receive Date: 20111215
  Receipt Date: 20111215
  Transmission Date: 20120403
  Serious: Yes (Other)
  Sender: FDA-Public Use
  Company Number: None

PATIENT
  Sex: Female
  Weight: 85.2 kg

DRUGS (8)
  1. MICARDIS HCT [Concomitant]
  2. SUPER CALCIUM WITH VIT D [Concomitant]
  3. CRESTOR [Suspect]
     Indication: DYSLIPIDAEMIA
     Dosage: 10 MG NIGHLY PO
     Route: 048
     Dates: start: 20110801, end: 20111126
  4. ASPIRIN [Concomitant]
  5. LUTEIN [Concomitant]
  6. CINNAMON OTC [Concomitant]
  7. TYLENOL PM [Concomitant]
  8. FISH OIL [Concomitant]

REACTIONS (3)
  - INFECTION [None]
  - URTICARIA [None]
  - MUSCLE SPASMS [None]
